FAERS Safety Report 6856579-3 (Version None)
Quarter: 2010Q3

REPORT INFORMATION
  Report Type: 
  Country: None (occurrence: None)
  Receive Date: 20100719
  Receipt Date: 20100707
  Transmission Date: 20110219
  Serious: Yes (Other)
  Sender: FDA-Public Use
  Company Number: JP-PFIZER INC-2010076100

PATIENT
  Age: 75 Year
  Sex: Male

DRUGS (1)
  1. GABAPEN [Suspect]
     Indication: NEURALGIA
     Dosage: 300 MG, 2X/DAY
     Route: 048
     Dates: start: 20100617, end: 20100618

REACTIONS (3)
  - HYPOTONIA [None]
  - MUSCULAR WEAKNESS [None]
  - SOMNOLENCE [None]
